FAERS Safety Report 6542243-7 (Version None)
Quarter: 2010Q1

REPORT INFORMATION
  Report Type: 
  Country: None (occurrence: None)
  Receive Date: 20100119
  Receipt Date: 20100114
  Transmission Date: 20100710
  Serious: Yes (Hospitalization)
  Sender: FDA-Public Use
  Company Number: B0626455A

PATIENT
  Sex: Male

DRUGS (1)
  1. AUGMENTIN '125' [Suspect]
     Indication: PROPHYLAXIS
     Dosage: 120MGK PER DAY
     Route: 042
     Dates: start: 20091204, end: 20091204

REACTIONS (2)
  - BLOOD IMMUNOGLOBULIN E INCREASED [None]
  - INFUSION SITE OEDEMA [None]
